FAERS Safety Report 13545939 (Version 3)
Quarter: 2017Q3

REPORT INFORMATION
  Report Type: Report from Study
  Country: None (occurrence: US)
  Receive Date: 20170515
  Receipt Date: 20170925
  Transmission Date: 20171127
  Serious: Yes (Other)
  Sender: FDA-Public Use
  Company Number: US-ABBVIE-17K-163-1973040-00

PATIENT
  Sex: Female

DRUGS (2)
  1. HUMIRA [Suspect]
     Active Substance: ADALIMUMAB
     Indication: CROHN^S DISEASE
     Route: 058
  2. HUMIRA [Suspect]
     Active Substance: ADALIMUMAB
     Indication: RHEUMATOID ARTHRITIS

REACTIONS (8)
  - Peripheral vascular disorder [Unknown]
  - Synovial cyst [Recovered/Resolved]
  - Rheumatoid arthritis [Unknown]
  - Fall [Unknown]
  - Joint dislocation [Unknown]
  - Osteoarthritis [Unknown]
  - Pain in extremity [Unknown]
  - Varicose ulceration [Unknown]
